FAERS Safety Report 6012728-0 (Version None)
Quarter: 2008Q4

REPORT INFORMATION
  Report Type: 
  Country: None (occurrence: None)
  Receive Date: 20081217
  Receipt Date: 20081203
  Transmission Date: 20090506
  Serious: Yes (Other)
  Sender: FDA-Public Use
  Company Number: 2008S1021578

PATIENT
  Age: 35 Year
  Sex: Male

DRUGS (4)
  1. FLUOXETINE HCL [Suspect]
     Indication: DEPRESSION
     Dosage: 20 MG; DAILY; ORAL
     Route: 048
     Dates: start: 20050101, end: 20081125
  2. FLUOXETINE HCL [Suspect]
     Indication: DEPRESSION
     Dosage: 20 MG; DAILY; ORAL
     Route: 048
     Dates: start: 20081126, end: 20081203
  3. FLUOXETINE HCL [Suspect]
     Indication: DEPRESSION
     Dosage: 20 MG; DAILY; ORAL
     Route: 048
     Dates: start: 20081204
  4. RABEPRAZOLE SODIUM [Concomitant]

REACTIONS (6)
  - DEPRESSION [None]
  - DIZZINESS [None]
  - FATIGUE [None]
  - IMPAIRED WORK ABILITY [None]
  - NAUSEA [None]
  - PRODUCT QUALITY ISSUE [None]
